FAERS Safety Report 7408007-7 (Version None)
Quarter: 2011Q2

REPORT INFORMATION
  Report Type: 
  Country: None (occurrence: None)
  Receive Date: 20110412
  Receipt Date: 20110408
  Transmission Date: 20111010
  Serious: No
  Sender: FDA-Public Use
  Company Number: US-PFIZER INC-2011059487

PATIENT
  Sex: Female

DRUGS (2)
  1. AZITHROMYCIN [Suspect]
     Dosage: 3/ 4TH TEASPOON DAILY
     Route: 048
     Dates: start: 20110314, end: 20110314
  2. AZITHROMYCIN [Suspect]
     Dosage: 1.8 ML, 1X/DAY
     Route: 048
     Dates: start: 20110315

REACTIONS (2)
  - PRODUCT TASTE ABNORMAL [None]
  - PARAESTHESIA [None]
